FAERS Safety Report 20190231 (Version 2)
Quarter: 2021Q4

REPORT INFORMATION
  Report Type: Spontaneous
  Country: None (occurrence: FR)
  Receive Date: 20211215
  Receipt Date: 20211227
  Transmission Date: 20220303
  Serious: Yes (Hospitalization)
  Sender: FDA-Public Use
  Company Number: FR-AFSSAPS-NT20215456

PATIENT
  Age: 19 Month
  Sex: Female
  Weight: 9.2 kg

DRUGS (2)
  1. NITROUS OXIDE [Suspect]
     Active Substance: NITROUS OXIDE
     Indication: Anaesthesia
     Route: 055
     Dates: start: 20210721, end: 20210721
  2. MEDICAL OXYGEN COMPRESSED [Concomitant]
     Active Substance: OXYGEN
     Route: 055
     Dates: start: 20210721, end: 20210721

REACTIONS (1)
  - Seizure [Recovered/Resolved]

NARRATIVE: CASE EVENT DATE: 20210721
